FAERS Safety Report 4267430-2 (Version None)
Quarter: 2004Q1

REPORT INFORMATION
  Report Type: 
  Country: None (occurrence: None)
  Receive Date: 20040109
  Receipt Date: 20031209
  Transmission Date: 20041129
  Serious: Yes (Hospitalization)
  Sender: FDA-Public Use
  Company Number: 200313206DE

PATIENT
  Age: 62 Year
  Sex: Female

DRUGS (6)
  1. TAXOTERE [Suspect]
     Indication: BREAST CANCER
     Route: 042
     Dates: start: 20031201, end: 20031201
  2. DOXORUBICIN HCL [Suspect]
     Indication: BREAST CANCER
     Dates: start: 20031201, end: 20031201
  3. CYCLOPHOSPHAMIDE [Suspect]
     Indication: BREAST CANCER
     Dates: start: 20031201, end: 20031201
  4. BLOOD AND RELATED PRODUCTS [Concomitant]
     Route: 058
     Dates: end: 20031202
  5. CIPROFLOXACIN [Concomitant]
     Route: 048
     Dates: end: 20031205
  6. DEXAMETHASONE [Concomitant]
     Route: 048
     Dates: end: 20031130

REACTIONS (4)
  - CIRCULATORY COLLAPSE [None]
  - FEBRILE NEUTROPENIA [None]
  - INFLUENZA [None]
  - PYREXIA [None]
